FAERS Safety Report 17012639 (Version 1)
Quarter: 2019Q4

REPORT INFORMATION
  Report Type: Spontaneous
  Country: US (occurrence: US)
  Receive Date: 20191109
  Receipt Date: 20191109
  Transmission Date: 20200122
  Serious: Yes (Other)
  Sender: FDA-Public Use
  Company Number: US-TEVA-2019-US-1132451

PATIENT
  Sex: Female

DRUGS (1)
  1. LETROZOLE TABLET [Suspect]
     Active Substance: LETROZOLE
     Indication: OVULATION INDUCTION
     Route: 065

REACTIONS (6)
  - Chest pain [Unknown]
  - Head discomfort [Unknown]
  - Heart rate increased [Unknown]
  - Palpitations [Unknown]
  - Hot flush [Unknown]
  - Ear discomfort [Unknown]
